FAERS Safety Report 5005044-7 (Version None)
Quarter: 2006Q2

REPORT INFORMATION
  Report Type: 
  Country: None (occurrence: None)
  Receive Date: 20060512
  Receipt Date: 20050407
  Transmission Date: 20061013
  Serious: Yes (Other)
  Sender: FDA-Public Use
  Company Number: ADR0052006

PATIENT
  Age: 72 Year
  Sex: Female
  Weight: 95 kg

DRUGS (9)
  1. RAMIPRIL [Suspect]
     Indication: DIABETES MELLITUS
     Dosage: 10 MG ORAL
     Route: 048
     Dates: start: 20050301
  2. RAMIPRIL [Suspect]
     Indication: HYPERTENSION
     Dosage: 10 MG ORAL
     Route: 048
     Dates: start: 20050301
  3. AMITRIPTYLINE HCL [Concomitant]
  4. ATORVASTATIN CALCIUM [Concomitant]
  5. LANSOPRAZOLE [Concomitant]
  6. MELOXICAM [Concomitant]
  7. PARACETAMOL [Concomitant]
  8. SALBUTAMOL [Concomitant]
  9. SENNA [Concomitant]

REACTIONS (2)
  - ABSCESS [None]
  - DISEASE RECURRENCE [None]
